FAERS Safety Report 8466177-6 (Version None)
Quarter: 2012Q2

REPORT INFORMATION
  Report Type: 
  Country: None (occurrence: None)
  Receive Date: 20120620
  Receipt Date: 20120620
  Transmission Date: 20120825
  Serious: Yes (Other)
  Sender: FDA-Public Use
  Company Number: None

PATIENT
  Sex: Male

DRUGS (2)
  1. FLOVENT HFA [Suspect]
     Indication: DYSPNOEA
     Dosage: 44 MICROGRAMS ONCE A NIGHT
     Dates: start: 20120510, end: 20120617
  2. ALBUTEROL [Concomitant]

REACTIONS (6)
  - NASOPHARYNGITIS [None]
  - OEDEMA PERIPHERAL [None]
  - RASH [None]
  - PAIN [None]
  - HEADACHE [None]
  - JOINT SWELLING [None]
